FAERS Safety Report 24030755 (Version 6)
Quarter: 2025Q2

REPORT INFORMATION
  Report Type: Spontaneous
  Country: US (occurrence: US)
  Receive Date: 20240628
  Receipt Date: 20250609
  Transmission Date: 20250716
  Serious: Yes (Hospitalization, Other)
  Sender: PFIZER
  Company Number: US-PFIZER INC-202400202336

PATIENT
  Age: 54 Year
  Sex: Female

DRUGS (1)
  1. VELSIPITY [Suspect]
     Active Substance: ETRASIMOD ARGININE
     Indication: Colitis

REACTIONS (3)
  - Hip arthroplasty [Recovering/Resolving]
  - COVID-19 [Unknown]
  - Blood cholesterol abnormal [Unknown]
